FAERS Safety Report 8941915 (Version 1)
Quarter: 2012Q4

REPORT INFORMATION
  Report Type: 
  Country: US (occurrence: US)
  Receive Date: 20121203
  Receipt Date: 20121203
  Transmission Date: 20130627
  Serious: No
  Sender: FDA-Public Use
  Company Number: US-009507513-1212USA000426

PATIENT
  Sex: Male

DRUGS (1)
  1. CLARITIN [Suspect]
     Indication: DRUG INEFFECTIVE FOR UNAPPROVED INDICATION
     Dosage: UNK, Unknown
     Dates: start: 20121030

REACTIONS (1)
  - Overdose [Unknown]
